FAERS Safety Report 4618011-X (Version None)
Quarter: 2005Q1

REPORT INFORMATION
  Report Type: 
  Country: None (occurrence: None)
  Receive Date: 20050324
  Receipt Date: 20030507
  Transmission Date: 20050727
  Serious: Yes (Hospitalization)
  Sender: FDA-Public Use
  Company Number: GB-SANOFI-SYNTHELABO-D01200300618

PATIENT
  Sex: Female
  Weight: 35.4 kg

DRUGS (4)
  1. SR57746 OR PLACEBO [Suspect]
     Route: 048
     Dates: start: 20030414, end: 20030506
  2. OXALIPLATIN [Suspect]
     Route: 042
     Dates: start: 20030428, end: 20030428
  3. FLUOROURACIL [Suspect]
     Dosage: 400 MG/M2 AS IV BOLUS THEN 600 MG/M2 AS 22 HOURS CONTINUOUS INFUSION D1-D2 Q2W
     Route: 042
     Dates: start: 20030428, end: 20030429
  4. LEUCOVORIN [Suspect]
     Dosage: 200 MG/M2 AS 2 HOURS INFUSION ON D1-D2 Q2W
     Route: 042
     Dates: start: 20030428, end: 20030429

REACTIONS (6)
  - ANAEMIA [None]
  - DEHYDRATION [None]
  - DIARRHOEA [None]
  - NEUTROPENIC SEPSIS [None]
  - TACHYCARDIA [None]
  - THERAPY NON-RESPONDER [None]
